FAERS Safety Report 10205947 (Version 1)
Quarter: 2014Q2

REPORT INFORMATION
  Report Type: Report from Study
  Country: US (occurrence: US)
  Receive Date: 20140530
  Receipt Date: 20140530
  Transmission Date: 20141212
  Serious: Yes (Hospitalization)
  Sender: FDA-Public Use
  Company Number: US-BRISTOL-MYERS SQUIBB COMPANY-20813606

PATIENT
  Age: 69 Year
  Sex: Female
  Weight: 72.65 kg

DRUGS (5)
  1. CARBOPLATIN [Suspect]
     Indication: OVARIAN CANCER
     Dosage: LAST DOSE ON: 24-APR-2014
     Route: 042
     Dates: start: 20140424
  2. GEMCITABINE [Suspect]
     Indication: OVARIAN CANCER
     Dosage: DAYS THREE AND TEN, 21 DAY CYCLE?LAST DOSE ON: 24-APR-2014
     Route: 042
     Dates: start: 20140424
  3. CADUET [Concomitant]
  4. LISINOPRIL [Concomitant]
     Dates: start: 20120622
  5. PROCHLORPERAZINE [Concomitant]

REACTIONS (2)
  - Drug reaction with eosinophilia and systemic symptoms [Unknown]
  - Pyrexia [Not Recovered/Not Resolved]
